FAERS Safety Report 18366874 (Version 1)
Quarter: 2020Q4

REPORT INFORMATION
  Report Type: Report from Study
  Country: BE (occurrence: BE)
  Receive Date: 20201009
  Receipt Date: 20201009
  Transmission Date: 20210114
  Serious: Yes (Hospitalization)
  Sender: FDA-Public Use
  Company Number: NVSC2020BE268934

PATIENT
  Age: 44 Year
  Sex: Female

DRUGS (2)
  1. BYL719 [Suspect]
     Active Substance: ALPELISIB
     Indication: PRODUCT USED FOR UNKNOWN INDICATION
     Dosage: UNK
     Route: 065
     Dates: start: 20200805
  2. MEDROL [Concomitant]
     Active Substance: METHYLPREDNISOLONE
     Indication: PRODUCT USED FOR UNKNOWN INDICATION
     Dosage: UNK
     Route: 065

REACTIONS (11)
  - Lymphadenopathy [Unknown]
  - Bone pain [Unknown]
  - Folate deficiency [Unknown]
  - Thrombocytopenia [Unknown]
  - Tumour marker increased [Unknown]
  - Dehydration [Recovered/Resolved]
  - Type 2 diabetes mellitus [Recovering/Resolving]
  - Bone marrow infiltration [Unknown]
  - Hyperglycaemia [Unknown]
  - Acute kidney injury [Recovering/Resolving]
  - Normocytic anaemia [Unknown]
